FAERS Safety Report 19797826 (Version 2)
Quarter: 2021Q4

REPORT INFORMATION
  Report Type: Spontaneous
  Country: AU (occurrence: AU)
  Receive Date: 20210907
  Receipt Date: 20211006
  Transmission Date: 20220303
  Serious: Yes (Hospitalization)
  Sender: FDA-Public Use
  Company Number: AU-GUERBET-AU-20210145

PATIENT
  Age: 51 Year
  Sex: Male
  Weight: 99 kg

DRUGS (1)
  1. OPTIRAY 350 [Suspect]
     Active Substance: IOVERSOL
     Indication: Positron emission tomogram
     Route: 042
     Dates: start: 20210818, end: 20210818

REACTIONS (3)
  - Generalised tonic-clonic seizure [Recovered/Resolved]
  - Foaming at mouth [Recovered/Resolved]
  - Cyanosis [Recovered/Resolved]

NARRATIVE: CASE EVENT DATE: 20210818
